FAERS Safety Report 25785680 (Version 1)
Quarter: 2025Q3

REPORT INFORMATION
  Report Type: Spontaneous
  Country: US (occurrence: US)
  Receive Date: 20250910
  Receipt Date: 20250910
  Transmission Date: 20251021
  Serious: Yes (Hospitalization, Other)
  Sender: DAIICHI
  Company Number: US-DSJP-DS-2025-163488-US

PATIENT
  Sex: Female

DRUGS (1)
  1. ENHERTU [Suspect]
     Active Substance: FAM-TRASTUZUMAB DERUXTECAN-NXKI
     Indication: Breast cancer metastatic
     Dosage: UNK, ONCE EVERY 1 MO
     Route: 065
     Dates: start: 2023

REACTIONS (9)
  - Thrombosis [Unknown]
  - Joint swelling [Recovering/Resolving]
  - Inflammation [Recovering/Resolving]
  - Peripheral swelling [Recovering/Resolving]
  - Terminal state [Unknown]
  - Drug hypersensitivity [Unknown]
  - Lip disorder [Unknown]
  - Epistaxis [Recovering/Resolving]
  - Inappropriate schedule of product administration [Not Recovered/Not Resolved]

NARRATIVE: CASE EVENT DATE: 20230101
